FAERS Safety Report 17584011 (Version 6)
Quarter: 2024Q1

REPORT INFORMATION
  Report Type: Spontaneous
  Country: US (occurrence: US)
  Receive Date: 20200326
  Receipt Date: 20240319
  Transmission Date: 20240409
  Serious: Yes (Other)
  Sender: FDA-Public Use
  Company Number: US-PFIZER INC-2020118308

PATIENT
  Age: 54 Year
  Sex: Female
  Weight: 73.94 kg

DRUGS (8)
  1. ENBREL [Suspect]
     Active Substance: ETANERCEPT
     Indication: Rheumatoid arthritis
     Dosage: 50 MILLIGRAM, QWK
     Route: 058
     Dates: start: 200603, end: 200603
  2. PRIMIDONE [Concomitant]
     Active Substance: PRIMIDONE
     Indication: Epilepsy
     Dosage: 1250 MILLIGRAM, QD (1250 MG, 1X/DAY)
     Route: 048
  3. XARELTO [Concomitant]
     Active Substance: RIVAROXABAN
     Indication: Sleep apnoea syndrome
     Dosage: 20 MILLIGRAM, QD
     Route: 048
  4. XARELTO [Concomitant]
     Active Substance: RIVAROXABAN
     Indication: Blood disorder
     Dosage: UNK
     Route: 065
  5. XARELTO [Concomitant]
     Active Substance: RIVAROXABAN
     Indication: Atrial fibrillation
     Dosage: UNK
     Route: 065
  6. SOTALOL HYDROCHLORIDE [Concomitant]
     Active Substance: SOTALOL HYDROCHLORIDE
     Indication: Heart rate abnormal
     Dosage: 80 MILLIGRAM, BID (80 MG, 2X/DAY)
     Route: 048
  7. XELJANZ XR [Concomitant]
     Active Substance: TOFACITINIB CITRATE
     Indication: Rheumatoid arthritis
     Dosage: 11 MILLIGRAM, QD
     Route: 048
     Dates: start: 20191231
  8. ESCITALOPRAM [Concomitant]
     Active Substance: ESCITALOPRAM OXALATE
     Indication: Stress
     Dosage: 20 MG, 1X/DAY
     Route: 048
     Dates: start: 2019

REACTIONS (8)
  - Wrist fracture [Unknown]
  - Rash erythematous [Unknown]
  - Hand deformity [Unknown]
  - Drug hypersensitivity [Unknown]
  - Confusional state [Unknown]
  - Rash pustular [Recovered/Resolved]
  - Psoriasis [Unknown]
  - Drug ineffective [Unknown]

NARRATIVE: CASE EVENT DATE: 20060301
